FAERS Safety Report 6096571-2 (Version None)
Quarter: 2009Q1

REPORT INFORMATION
  Report Type: 
  Country: None (occurrence: None)
  Receive Date: 20090225
  Receipt Date: 20090225
  Transmission Date: 20090719
  Serious: Yes (Other)
  Sender: FDA-Public Use
  Company Number: None

PATIENT
  Sex: Male
  Weight: 22.4531 kg

DRUGS (1)
  1. DEPAKOTE ER [Suspect]
     Indication: CONVULSION
     Dosage: 1000 MG QHS ORAL
     Route: 048
     Dates: start: 20090201

REACTIONS (2)
  - CONDITION AGGRAVATED [None]
  - CONVULSION [None]
